FAERS Safety Report 9120096 (Version 1)
Quarter: 2013Q1

REPORT INFORMATION
  Report Type: Spontaneous
  Country: US (occurrence: US)
  Receive Date: 20130226
  Receipt Date: 20130226
  Transmission Date: 20140127
  Serious: No
  Sender: FDA-Public Use
  Company Number: US-TARO-2012P1060101

PATIENT
  Age: 66 Year
  Sex: Female

DRUGS (1)
  1. TERCONAZOLE VAGINAL CREAM 0.8% [Suspect]
     Indication: VULVOVAGINAL PRURITUS
     Route: 067
     Dates: start: 201207

REACTIONS (2)
  - Drug ineffective [Not Recovered/Not Resolved]
  - Product substitution issue [Unknown]
